FAERS Safety Report 22324632 (Version 1)
Quarter: 2023Q2

REPORT INFORMATION
  Report Type: Report from Study
  Country: US (occurrence: US)
  Receive Date: 20230516
  Receipt Date: 20230516
  Transmission Date: 20230722
  Serious: Yes (Death, Hospitalization, Other)
  Sender: FDA-Public Use
  Company Number: US-SUN PHARMACEUTICAL INDUSTRIES LTD-2023R1-388222

PATIENT
  Age: 2 Year
  Sex: Female
  Weight: 46 kg

DRUGS (6)
  1. DEXAMETHASONE [Suspect]
     Active Substance: DEXAMETHASONE
     Indication: COVID-19 pneumonia
     Dosage: 6 MILLIGRAM
     Route: 065
  2. ANAKINRA [Suspect]
     Active Substance: ANAKINRA
     Indication: COVID-19 pneumonia
     Dosage: 5 MILLIGRAM/KILOGRAM, QD
     Route: 042
  3. BIVALIRUDIN [Suspect]
     Active Substance: BIVALIRUDIN
     Indication: COVID-19 pneumonia
     Dosage: UNK
     Route: 065
  4. ILOPROST [Suspect]
     Active Substance: ILOPROST
     Indication: COVID-19 pneumonia
     Dosage: UNK
     Route: 065
  5. MILRINONE [Suspect]
     Active Substance: MILRINONE
     Indication: COVID-19 pneumonia
     Dosage: UNK
     Route: 065
  6. REMDESIVIR [Suspect]
     Active Substance: REMDESIVIR
     Indication: COVID-19 pneumonia
     Dosage: UNK
     Route: 065

REACTIONS (5)
  - Cardiopulmonary failure [Fatal]
  - Pulmonary haemorrhage [Fatal]
  - Pneumothorax [Fatal]
  - Hypertensive crisis [Unknown]
  - Pulmonary hypertension [Unknown]
